FAERS Safety Report 23501790 (Version 1)
Quarter: 2024Q1

REPORT INFORMATION
  Report Type: Spontaneous
  Country: US (occurrence: US)
  Receive Date: 20240208
  Receipt Date: 20240208
  Transmission Date: 20240410
  Serious: Yes (Hospitalization, Other)
  Sender: FDA-Public Use
  Company Number: US-ANIPHARMA-2023-US-039593

PATIENT
  Age: 50 Year
  Sex: Female
  Weight: 83.92 kg

DRUGS (1)
  1. CORTICOTROPIN [Suspect]
     Active Substance: CORTICOTROPIN
     Indication: Systemic lupus erythematosus
     Dosage: 80 UNITS ( 1 ML ) UNDER THE SKIN 2 TO 3 TIMES A WEEK AS DIRECTED.
     Route: 058
     Dates: start: 20231014

REACTIONS (2)
  - Gastric ulcer perforation [Unknown]
  - Abdominal abscess [Unknown]

NARRATIVE: CASE EVENT DATE: 20231102
